FAERS Safety Report 10460435 (Version 1)
Quarter: 2014Q3

REPORT INFORMATION
  Report Type: Spontaneous
  Country: FR (occurrence: FR)
  Receive Date: 20140917
  Receipt Date: 20140917
  Transmission Date: 20150326
  Serious: Yes (Other)
  Sender: FDA-Public Use
  Company Number: FR-AMGEN-FRASP2014068786

PATIENT
  Age: 62 Year
  Sex: Male

DRUGS (6)
  1. XTANDI [Concomitant]
     Active Substance: ENZALUTAMIDE
     Indication: METASTASES TO BONE
  2. XGEVA [Suspect]
     Active Substance: DENOSUMAB
     Indication: PROSTATE CANCER
     Dosage: UNK
     Route: 065
  3. XGEVA [Suspect]
     Active Substance: DENOSUMAB
     Indication: METASTASES TO BONE
  4. JEVTANA [Concomitant]
     Active Substance: CABAZITAXEL
     Indication: PROSTATE CANCER
  5. JEVTANA [Concomitant]
     Active Substance: CABAZITAXEL
     Indication: METASTASES TO BONE
  6. XTANDI [Concomitant]
     Active Substance: ENZALUTAMIDE
     Indication: PROSTATE CANCER

REACTIONS (1)
  - Osteonecrosis of jaw [Unknown]
